FAERS Safety Report 22232896 (Version 1)
Quarter: 2023Q2

REPORT INFORMATION
  Report Type: Spontaneous
  Country: US (occurrence: None)
  Receive Date: 20230420
  Receipt Date: 20230420
  Transmission Date: 20230722
  Serious: No
  Sender: FDA-Public Use
  Company Number: US-ROCHE-3177551

PATIENT

DRUGS (1)
  1. AVASTIN [Suspect]
     Active Substance: BEVACIZUMAB
     Indication: Eye disorder
     Route: 065

REACTIONS (3)
  - Off label use [Unknown]
  - Intercepted product storage error [Unknown]
  - No adverse event [Unknown]
